FAERS Safety Report 9846561 (Version 1)
Quarter: 2014Q1

REPORT INFORMATION
  Report Type: Spontaneous
  Country: JP (occurrence: None)
  Receive Date: 20140117
  Receipt Date: 20140117
  Transmission Date: 20141002
  Serious: Yes (Other)
  Sender: FDA-Public Use
  Company Number: KAD201401-000039

PATIENT
  Age: 63 Year
  Sex: Male

DRUGS (3)
  1. RIBAVIRIN (RIBAVIRIN) [Suspect]
     Indication: CHRONIC HEPATITIS C
  2. PEGINTERFERON ALFA [Suspect]
     Indication: CHRONIC HEPATITIS C
  3. TELAPREVIR [Suspect]
     Indication: CHRONIC HEPATITIS C

REACTIONS (8)
  - Skin disorder [None]
  - Stevens-Johnson syndrome [None]
  - Toxic epidermal necrolysis [None]
  - Drug reaction with eosinophilia and systemic symptoms [None]
  - Seborrhoeic dermatitis [None]
  - Injection site reaction [None]
  - Hypokalaemia [None]
  - Pancytopenia [None]
